FAERS Safety Report 16968186 (Version 1)
Quarter: 2019Q4

REPORT INFORMATION
  Report Type: Spontaneous
  Country: GB (occurrence: GB)
  Receive Date: 20191028
  Receipt Date: 20191028
  Transmission Date: 20200122
  Serious: Yes (Death, Other)
  Sender: FDA-Public Use
  Company Number: GB-GALDERMA-GB19063652

PATIENT
  Age: 40 Year
  Sex: Male

DRUGS (2)
  1. IVERMECTIN. [Suspect]
     Active Substance: IVERMECTIN
     Indication: FILARIASIS LYMPHATIC
     Route: 065
  2. DOXYCYCLINE. [Suspect]
     Active Substance: DOXYCYCLINE
     Indication: FILARIASIS LYMPHATIC
     Dosage: EXTENDED 6 WEEK COURSE OF THERAPY
     Route: 065

REACTIONS (6)
  - Multiple organ dysfunction syndrome [Fatal]
  - Retroperitoneal fibrosis [Unknown]
  - Renal atrophy [Unknown]
  - Intentional product use issue [Recovered/Resolved]
  - Vascular compression [Unknown]
  - Drug ineffective for unapproved indication [Recovered/Resolved]
